FAERS Safety Report 19133945 (Version 1)
Quarter: 2021Q2

REPORT INFORMATION
  Report Type: Spontaneous
  Country: US (occurrence: US)
  Receive Date: 20210414
  Receipt Date: 20210414
  Transmission Date: 20210717
  Serious: No
  Sender: FDA-Public Use
  Company Number: US-BION-008636

PATIENT
  Sex: Female

DRUGS (4)
  1. ASCORBIC ACID/CALCIUM PANTOTHENATE/COLECALCIFEROL/CYANOCOBALAMIN/NICOTINAMIDE/PYRIDOXINE HYDROCHLORI [Concomitant]
  2. ALEVE [Suspect]
     Active Substance: NAPROXEN SODIUM
     Indication: PAIN
     Dosage: 2 CAPSULES EVERY 12 HOURS
     Route: 048
  3. SODIUM FLUORIDE. [Concomitant]
     Active Substance: SODIUM FLUORIDE
  4. GLUCOSAMINE [Concomitant]
     Active Substance: GLUCOSAMINE

REACTIONS (1)
  - Product prescribing error [Not Recovered/Not Resolved]
